FAERS Safety Report 8603639-2 (Version None)
Quarter: 2012Q3

REPORT INFORMATION
  Report Type: 
  Country: None (occurrence: None)
  Receive Date: 20120817
  Receipt Date: 20120813
  Transmission Date: 20120928
  Serious: Yes (Other)
  Sender: FDA-Public Use
  Company Number: GB-CUBIST-2012S1000679

PATIENT
  Age: 67 Year
  Sex: Male

DRUGS (5)
  1. CUBICIN [Suspect]
     Indication: RENAL FAILURE ACUTE
  2. CUBICIN [Suspect]
     Indication: STAPHYLOCOCCAL INFECTION
  3. RIFAMPICIN [Suspect]
     Indication: PRODUCT USED FOR UNKNOWN INDICATION
  4. VANCOMYCIN [Concomitant]
     Indication: PRODUCT USED FOR UNKNOWN INDICATION
  5. GENTAMICIN [Concomitant]
     Indication: PRODUCT USED FOR UNKNOWN INDICATION

REACTIONS (1)
  - VASCULITIC RASH [None]
